FAERS Safety Report 9596780 (Version 6)
Quarter: 2014Q1

REPORT INFORMATION
  Report Type: Spontaneous
  Country: US (occurrence: US)
  Receive Date: 20131004
  Receipt Date: 20140305
  Transmission Date: 20141002
  Serious: Yes (Hospitalization, Other)
  Sender: FDA-Public Use
  Company Number: US-009507513-1309USA014261

PATIENT
  Sex: Female
  Weight: 69.39 kg

DRUGS (3)
  1. FOSAMAX [Suspect]
     Indication: OSTEOPENIA
     Dosage: 70 MG, UNK
     Route: 048
     Dates: start: 2003, end: 201109
  2. FOSAMAX PLUS D [Suspect]
     Dosage: 70/5600 IU
     Route: 048
  3. ALENDRONATE SODIUM [Suspect]
     Dosage: 70 MG, UNK

REACTIONS (17)
  - Femur fracture [Recovering/Resolving]
  - Intramedullary rod insertion [Unknown]
  - Open reduction of fracture [Unknown]
  - Impaired healing [Unknown]
  - Patella fracture [Unknown]
  - Hypothyroidism [Unknown]
  - Hypertension [Unknown]
  - Fall [Unknown]
  - Joint effusion [Unknown]
  - Osteoarthritis [Unknown]
  - Spinal osteoarthritis [Unknown]
  - Tonsillectomy [Unknown]
  - Adenoidectomy [Unknown]
  - Myringotomy [Unknown]
  - Osteoporosis [Unknown]
  - Haemorrhagic anaemia [Unknown]
  - Amenorrhoea [Unknown]
